FAERS Safety Report 9466162 (Version 1)
Quarter: 2013Q3

REPORT INFORMATION
  Report Type: Report from Study
  Country: US (occurrence: US)
  Receive Date: 20130820
  Receipt Date: 20130820
  Transmission Date: 20140515
  Serious: Yes (Death, Other)
  Sender: FDA-Public Use
  Company Number: US-BAXTER-2013BAX032485

PATIENT
  Age: 65 Year
  Sex: 0

DRUGS (13)
  1. CYCLOPHOSPHAMIDE FOR INJECTION, USP [Suspect]
     Indication: BURKITT^S LYMPHOMA
     Dosage: DAY 1
     Route: 042
  2. CYCLOPHOSPHAMIDE FOR INJECTION, USP [Suspect]
     Indication: BURKITT^S LEUKAEMIA
     Dosage: DAY 2-5
     Route: 042
  3. MESNEX (MESNA) INJECTION - 3 GRAM [Suspect]
     Indication: BURKITT^S LYMPHOMA
     Dosage: DAY 2-5
     Route: 042
  4. MESNEX (MESNA) INJECTION - 3 GRAM [Suspect]
     Indication: BURKITT^S LEUKAEMIA
  5. RITUXIMAB [Suspect]
     Indication: BURKITT^S LYMPHOMA
     Dosage: DAYS 1 AND 8
     Route: 042
  6. RITUXIMAB [Suspect]
     Indication: BURKITT^S LEUKAEMIA
     Dosage: DAYS 1
     Route: 042
  7. RITUXIMAB [Suspect]
     Dosage: FOR 4 DOSES
     Route: 042
  8. FILGRASTIM [Suspect]
     Indication: BURKITT^S LYMPHOMA
     Dosage: 5 MCG/KG/DAY (DAY 3)
     Route: 058
  9. FILGRASTIM [Suspect]
     Indication: BURKITT^S LEUKAEMIA
  10. CYTARABINE [Suspect]
     Indication: BURKITT^S LYMPHOMA
     Dosage: DAYS 1, 4, 8 AND 11
     Route: 037
  11. CYTARABINE [Suspect]
     Indication: BURKITT^S LEUKAEMIA
  12. METHOTREXATE [Suspect]
     Indication: BURKITT^S LYMPHOMA
     Dosage: 3 G/M2
     Route: 042
  13. METHOTREXATE [Suspect]
     Indication: BURKITT^S LEUKAEMIA

REACTIONS (2)
  - Sepsis [Fatal]
  - Neutropenia [Unknown]
